FAERS Safety Report 21531682 (Version 1)
Quarter: 2022Q4

REPORT INFORMATION
  Report Type: Spontaneous
  Country: US (occurrence: None)
  Receive Date: 20221029
  Receipt Date: 20221029
  Transmission Date: 20230113
  Serious: Yes (Hospitalization)
  Sender: FDA-Public Use
  Company Number: None

PATIENT
  Age: 32 Year
  Sex: Female
  Weight: 112.9 kg

DRUGS (8)
  1. CYCLOPHOSPHAMIDE [Suspect]
     Active Substance: CYCLOPHOSPHAMIDE
     Dates: end: 20220722
  2. CYTARABINE [Suspect]
     Active Substance: CYTARABINE
     Dates: end: 20220801
  3. DEXAMETHASONE [Suspect]
     Active Substance: DEXAMETHASONE
     Dates: end: 20220826
  4. DOXORUBICIN HYDROCHLORIDE [Suspect]
     Active Substance: DOXORUBICIN HYDROCHLORIDE
     Dates: end: 20220420
  5. METHOTREXATE [Suspect]
     Active Substance: METHOTREXATE
     Dates: end: 20220725
  6. RITUXIMAB [Suspect]
     Active Substance: RITUXIMAB
     Dates: end: 20220413
  7. THIOGUANINE ANHYDROUS [Suspect]
     Active Substance: THIOGUANINE ANHYDROUS
     Dates: end: 20220804
  8. VINCRISTINE SULFATE [Suspect]
     Active Substance: VINCRISTINE SULFATE
     Dates: end: 20220814

REACTIONS (8)
  - Oral disorder [None]
  - Hypotension [None]
  - Tachycardia [None]
  - Pyrexia [None]
  - Varicella zoster virus infection [None]
  - Enterobacter infection [None]
  - Pseudomonas infection [None]
  - Blood culture positive [None]

NARRATIVE: CASE EVENT DATE: 20221022
